FAERS Safety Report 6353432-9 (Version None)
Quarter: 2009Q3

REPORT INFORMATION
  Report Type: 
  Country: None (occurrence: None)
  Receive Date: 20090912
  Receipt Date: 20090622
  Transmission Date: 20100115
  Serious: No
  Sender: FDA-Public Use
  Company Number: US-ABBOTT-08P-163-0472494-00

PATIENT
  Sex: Female
  Weight: 60.382 kg

DRUGS (3)
  1. HUMIRA [Suspect]
     Indication: RHEUMATOID ARTHRITIS
     Route: 050
     Dates: start: 20050101, end: 20060101
  2. HUMIRA [Suspect]
     Route: 050
     Dates: start: 20060101
  3. LISINOPRIL [Concomitant]
     Indication: BLOOD PRESSURE
     Route: 048
     Dates: start: 20070101

REACTIONS (4)
  - BLOOD PRESSURE INCREASED [None]
  - DRUG INEFFECTIVE [None]
  - INCORRECT DOSE ADMINISTERED [None]
  - INJECTION SITE EXTRAVASATION [None]
